FAERS Safety Report 11081935 (Version 8)
Quarter: 2016Q2

REPORT INFORMATION
  Report Type: Report from Study
  Country: US (occurrence: US)
  Receive Date: 20150501
  Receipt Date: 20160627
  Transmission Date: 20160815
  Serious: Yes (Life-Threatening, Hospitalization)
  Sender: FDA-Public Use
  Company Number: US-SA-2015SA057635

PATIENT
  Age: 68 Year
  Sex: Male

DRUGS (20)
  1. TRAZODONE [Concomitant]
     Active Substance: TRAZODONE HYDROCHLORIDE
  2. FLUOXETINE HYDROCHLORIDE. [Concomitant]
     Active Substance: FLUOXETINE HYDROCHLORIDE
  3. SYNTHROID [Concomitant]
     Active Substance: LEVOTHYROXINE SODIUM
  4. ASPIRIN. [Concomitant]
     Active Substance: ASPIRIN
  5. LEVETIRACETAM. [Concomitant]
     Active Substance: LEVETIRACETAM
  6. CYANOCOBALAMIN. [Concomitant]
     Active Substance: CYANOCOBALAMIN
  7. ENALAPRIL MALEATE. [Concomitant]
     Active Substance: ENALAPRIL MALEATE
  8. BACLOFEN. [Concomitant]
     Active Substance: BACLOFEN
  9. DOCUSATE SODIUM. [Concomitant]
     Active Substance: DOCUSATE SODIUM
  10. TROSPIUM CHLORIDE. [Concomitant]
     Active Substance: TROSPIUM CHLORIDE
  11. GALANTAMINE. [Concomitant]
     Active Substance: GALANTAMINE
  12. CARVEDILOL. [Concomitant]
     Active Substance: CARVEDILOL
  13. CETIRIZINE HYDROCHLORIDE. [Concomitant]
     Active Substance: CETIRIZINE HYDROCHLORIDE
  14. ATROVENT [Concomitant]
     Active Substance: IPRATROPIUM BROMIDE
  15. TEMAZEPAM. [Concomitant]
     Active Substance: TEMAZEPAM
  16. LEMTRADA [Suspect]
     Active Substance: ALEMTUZUMAB
     Indication: MULTIPLE SCLEROSIS
     Route: 041
     Dates: start: 20150330, end: 20150403
  17. TAMSULOSIN [Concomitant]
     Active Substance: TAMSULOSIN
  18. FUROSEMIDE. [Concomitant]
     Active Substance: FUROSEMIDE
  19. OMEPRAZOLE. [Concomitant]
     Active Substance: OMEPRAZOLE
  20. ALBUTEROL. [Concomitant]
     Active Substance: ALBUTEROL
     Route: 055

REACTIONS (23)
  - Cardiac disorder [Recovering/Resolving]
  - Pharyngeal oedema [Recovering/Resolving]
  - Choking [Not Recovered/Not Resolved]
  - Local swelling [Unknown]
  - Headache [Unknown]
  - Abasia [Recovering/Resolving]
  - Dysphagia [Recovering/Resolving]
  - Thyroid disorder [Recovering/Resolving]
  - Asthenia [Unknown]
  - Renal impairment [Recovering/Resolving]
  - Oxygen saturation decreased [Unknown]
  - Malaise [Not Recovered/Not Resolved]
  - Wheezing [Unknown]
  - Respiratory arrest [Recovering/Resolving]
  - Dyspnoea [Recovering/Resolving]
  - Lung disorder [Not Recovered/Not Resolved]
  - Feeding disorder [Recovering/Resolving]
  - Pneumonia [Recovering/Resolving]
  - Memory impairment [Not Recovered/Not Resolved]
  - Gastric disorder [Not Recovered/Not Resolved]
  - Heart rate increased [Unknown]
  - Dysphagia [Recovering/Resolving]
  - Pneumonia aspiration [Unknown]

NARRATIVE: CASE EVENT DATE: 2015
